FAERS Safety Report 4696820-9 (Version None)
Quarter: 2005Q2

REPORT INFORMATION
  Report Type: 
  Country: None (occurrence: None)
  Receive Date: 20050126
  Receipt Date: 20050126
  Transmission Date: 20051028
  Serious: No
  Sender: FDA-Public Use
  Company Number: None

PATIENT
  Sex: Female
  Weight: 77.1115 kg

DRUGS (2)
  1. GENERIC PERCOCET [Suspect]
     Indication: BACK PAIN
     Dosage: 5/325 1 4-6 HR PRN
  2. GENERIC PERCOCET [Suspect]
     Indication: RADICULAR PAIN
     Dosage: 5/325 1 4-6 HR PRN

REACTIONS (2)
  - DRUG EFFECT DECREASED [None]
  - THERAPEUTIC RESPONSE UNEXPECTED WITH DRUG SUBSTITUTION [None]
